FAERS Safety Report 20663008 (Version 1)
Quarter: 2022Q2

REPORT INFORMATION
  Report Type: Report from Study
  Country: IT (occurrence: IT)
  Receive Date: 20220401
  Receipt Date: 20220401
  Transmission Date: 20220721
  Serious: Yes (Other)
  Sender: FDA-Public Use
  Company Number: IT-NOVARTISPH-NVSC2022IT071749

PATIENT
  Age: 43 Year
  Sex: Female

DRUGS (1)
  1. CYCLOSPORINE [Suspect]
     Active Substance: CYCLOSPORINE
     Indication: Product used for unknown indication
     Dosage: UNK
     Route: 065

REACTIONS (21)
  - Rectal haemorrhage [Unknown]
  - Skin discolouration [Unknown]
  - Decreased appetite [Unknown]
  - Contusion [Unknown]
  - Depression [Unknown]
  - Immune thrombocytopenia [Unknown]
  - Purpura [Unknown]
  - Cognitive disorder [Unknown]
  - Stress [Unknown]
  - Anxiety [Unknown]
  - Affective disorder [Unknown]
  - Decreased interest [Unknown]
  - Depressed mood [Unknown]
  - Asthenia [Unknown]
  - Disturbance in attention [Unknown]
  - Bradykinesia [Unknown]
  - Slow speech [Unknown]
  - Restlessness [Unknown]
  - Feeling abnormal [Unknown]
  - Hyperphagia [Unknown]
  - Fatigue [Unknown]
